FAERS Safety Report 19697928 (Version 1)
Quarter: 2021Q3

REPORT INFORMATION
  Report Type: Spontaneous
  Country: FR (occurrence: FR)
  Receive Date: 20210813
  Receipt Date: 20210813
  Transmission Date: 20211014
  Serious: Yes (Hospitalization)
  Sender: FDA-Public Use
  Company Number: FR-TEVA-2021-FR-1940821

PATIENT
  Age: 64 Year
  Sex: Male

DRUGS (4)
  1. ASPARAGINASE [Suspect]
     Active Substance: ASPARAGINASE
     Indication: ACUTE LYMPHOCYTIC LEUKAEMIA
     Dosage: UNIT DOSE :6000 IU ,TO J8, J10, J12, J20, J22 AND J24
     Route: 042
     Dates: start: 20210601
  2. SULFATE DE VINCRISTINE [Suspect]
     Active Substance: VINCRISTINE SULFATE
     Indication: ACUTE LYMPHOCYTIC LEUKAEMIA
     Dosage: UNIT DOSE :6000 IU ,TO J8, J10, J12, J20, J22 AND J24
     Route: 042
     Dates: start: 20210601
  3. CYCLOPHOSPHAMIDE. [Suspect]
     Active Substance: CYCLOPHOSPHAMIDE
     Indication: ACUTE LYMPHOCYTIC LEUKAEMIA
     Dosage: 6000 IU ,TO J8, J10, J12, J20, J22 AND J24
     Route: 042
     Dates: start: 20210601
  4. CHLORHYDRATE DE DAUNORUBICINE [Suspect]
     Active Substance: DAUNORUBICIN HYDROCHLORIDE
     Indication: ACUTE LYMPHOCYTIC LEUKAEMIA
     Dosage: 6000 IU ,UNIT DOSE :6000 IU ,TO J8, J10, J12, J20, J22 AND J24
     Route: 042
     Dates: start: 20210601

REACTIONS (2)
  - Jaundice cholestatic [Not Recovered/Not Resolved]
  - Hyperbilirubinaemia [Not Recovered/Not Resolved]

NARRATIVE: CASE EVENT DATE: 202106
